FAERS Safety Report 23676653 (Version 1)
Quarter: 2024Q1

REPORT INFORMATION
  Report Type: Spontaneous
  Country: ZA (occurrence: None)
  Receive Date: 20240327
  Receipt Date: 20240327
  Transmission Date: 20240409
  Serious: Yes (Hospitalization)
  Sender: FDA-Public Use
  Company Number: 2024A068721

PATIENT
  Age: 75 Year
  Sex: Female

DRUGS (7)
  1. DAPAGLIFLOZIN PROPANEDIOL [Suspect]
     Active Substance: DAPAGLIFLOZIN PROPANEDIOL
     Indication: Diabetes mellitus
     Route: 048
  2. SIMVASTATIN [Concomitant]
     Active Substance: SIMVASTATIN
     Indication: Blood cholesterol
     Route: 048
  3. IRBESARTAN [Concomitant]
     Active Substance: IRBESARTAN
     Indication: Hypertension
     Route: 048
  4. METHOTREXATE SODIUM [Concomitant]
     Active Substance: METHOTREXATE SODIUM
     Indication: Neoplasm malignant
     Route: 048
  5. PANTOCID [Concomitant]
     Indication: Ulcer
     Route: 048
  6. PLASMOQUIN [Concomitant]
     Indication: Rheumatoid arthritis
     Route: 048
  7. DOMADOL [Concomitant]
     Indication: Pain
     Route: 048

REACTIONS (3)
  - Iron deficiency [Unknown]
  - Renal disorder [Unknown]
  - Liver disorder [Unknown]
